FAERS Safety Report 4703967-7 (Version None)
Quarter: 2005Q2

REPORT INFORMATION
  Report Type: 
  Country: None (occurrence: None)
  Receive Date: 20050630
  Receipt Date: 20050505
  Transmission Date: 20051028
  Serious: Yes (Disabling)
  Sender: FDA-Public Use
  Company Number: US-MERCK-0505USA00721

PATIENT
  Sex: Male

DRUGS (4)
  1. PROSCAR [Suspect]
     Indication: BENIGN PROSTATIC HYPERPLASIA
     Route: 048
     Dates: start: 20050101, end: 20050425
  2. PROSCAR [Suspect]
     Route: 048
     Dates: start: 20050101
  3. TERAZOSIN HYDROCHLORIDE [Concomitant]
     Route: 065
  4. ZOCOR [Concomitant]
     Route: 048

REACTIONS (5)
  - ASTHENIA [None]
  - BACK PAIN [None]
  - BLOOD PRESSURE INCREASED [None]
  - HEADACHE [None]
  - POLLAKIURIA [None]
